FAERS Safety Report 16181752 (Version 2)
Quarter: 2019Q2

REPORT INFORMATION
  Report Type: Spontaneous
  Country: JP (occurrence: JP)
  Receive Date: 20190410
  Receipt Date: 20190624
  Transmission Date: 20190711
  Serious: Yes (Other)
  Sender: FDA-Public Use
  Company Number: JP-PFIZER INC-2019141364

PATIENT
  Age: 53 Year
  Sex: Male
  Weight: 50.2 kg

DRUGS (12)
  1. VFEND [Suspect]
     Active Substance: VORICONAZOLE
     Indication: PULMONARY MYCOSIS
     Dosage: 300 MG, 2X/DAY
     Route: 042
     Dates: start: 20190206, end: 20190206
  2. PRIMPERAN [Concomitant]
     Active Substance: METOCLOPRAMIDE HYDROCHLORIDE
     Indication: NAUSEA
     Dosage: 5 MG, AS NEEDED
     Route: 048
     Dates: start: 20190130, end: 20190205
  3. VFEND [Suspect]
     Active Substance: VORICONAZOLE
     Dosage: 200 MG, 2X/DAY
     Route: 042
     Dates: start: 20190207, end: 20190221
  4. ITRIZOLE [Concomitant]
     Active Substance: ITRACONAZOLE
     Indication: BRONCHOPULMONARY ASPERGILLOSIS
     Dosage: 200 MG, 2X/DAY
     Route: 048
     Dates: start: 20180719, end: 20190204
  5. FAMOTIDINE. [Concomitant]
     Active Substance: FAMOTIDINE
     Indication: NAUSEA
     Dosage: 10 MG, 2X/DAY
     Route: 048
     Dates: start: 20190130, end: 20190205
  6. FAMOTIDINE. [Concomitant]
     Active Substance: FAMOTIDINE
     Indication: COUGH
  7. APRICOT KERNEL WATER [Concomitant]
     Active Substance: HERBALS
     Indication: ANTITUSSIVE THERAPY
     Dosage: 1 ML, 3X/DAY
     Route: 048
     Dates: start: 20190124
  8. APRICOT KERNEL WATER [Concomitant]
     Active Substance: HERBALS
     Indication: PRODUCTIVE COUGH
  9. OPISEZOL-CODEINE [Concomitant]
     Active Substance: HERBALS
     Indication: ANTITUSSIVE THERAPY
  10. AMBROXOL HYDROCHLORIDE [Concomitant]
     Active Substance: AMBROXOL HYDROCHLORIDE
     Indication: PRODUCTIVE COUGH
     Dosage: 45 MG, 1X/DAY
     Route: 048
     Dates: start: 20190124
  11. PRIMPERAN [Concomitant]
     Active Substance: METOCLOPRAMIDE HYDROCHLORIDE
     Indication: COUGH
  12. OPISEZOL-CODEINE [Concomitant]
     Active Substance: HERBALS
     Indication: PRODUCTIVE COUGH
     Dosage: 2 ML, 3X/DAY
     Route: 048
     Dates: start: 20190124

REACTIONS (2)
  - Drug level increased [Recovered/Resolved]
  - Hepatic function abnormal [Recovered/Resolved]

NARRATIVE: CASE EVENT DATE: 201902
